FAERS Safety Report 13025509 (Version 3)
Quarter: 2017Q1

REPORT INFORMATION
  Report Type: Spontaneous
  Country: AU (occurrence: AU)
  Receive Date: 20161214
  Receipt Date: 20170131
  Transmission Date: 20170428
  Serious: Yes (Disabling, Other)
  Sender: FDA-Public Use
  Company Number: AU-SHIRE-AU201618501

PATIENT
  Age: 9 Year
  Sex: Male
  Weight: 40 kg

DRUGS (1)
  1. VYVANSE [Suspect]
     Active Substance: LISDEXAMFETAMINE DIMESYLATE
     Indication: ATTENTION DEFICIT/HYPERACTIVITY DISORDER
     Dosage: 30 MG, ONE DOSE (AT 0800 AM)
     Route: 048
     Dates: start: 20161127, end: 20161127

REACTIONS (8)
  - Pain in jaw [Recovered/Resolved]
  - Facial paralysis [Recovered/Resolved]
  - Hyperaesthesia [Recovered/Resolved]
  - Burning sensation [Recovered/Resolved]
  - Flat affect [Recovered/Resolved]
  - Diarrhoea [Recovered/Resolved]
  - Asthenia [Recovered/Resolved]
  - Hyperhidrosis [Recovered/Resolved]

NARRATIVE: CASE EVENT DATE: 20161127
